FAERS Safety Report 4389892-2 (Version None)
Quarter: 2004Q2

REPORT INFORMATION
  Report Type: 
  Country: None (occurrence: None)
  Receive Date: 20040630
  Receipt Date: 20040630
  Transmission Date: 20050107
  Serious: Yes (Hospitalization)
  Sender: FDA-Public Use
  Company Number: None

PATIENT
  Sex: Female

DRUGS (4)
  1. DITROPAN XL [Suspect]
     Indication: MICTURITION URGENCY
     Dosage: 10 MG QD ORAL
     Route: 048
     Dates: start: 20040428, end: 20040610
  2. DITROPAN XL [Suspect]
     Indication: POLLAKIURIA
     Dosage: 10 MG QD ORAL
     Route: 048
     Dates: start: 20040428, end: 20040610
  3. DITROPAN XL [Suspect]
     Indication: MICTURITION URGENCY
     Dosage: 20 MG QD ORAL
     Route: 048
     Dates: start: 20040609, end: 20040615
  4. DITROPAN XL [Suspect]
     Indication: POLLAKIURIA
     Dosage: 20 MG QD ORAL
     Route: 048
     Dates: start: 20040609, end: 20040615

REACTIONS (2)
  - ABNORMAL FAECES [None]
  - INTESTINAL OBSTRUCTION [None]
